FAERS Safety Report 10656374 (Version 2)
Quarter: 2014Q4

REPORT INFORMATION
  Report Type: Spontaneous
  Country: US (occurrence: US)
  Receive Date: 20141216
  Receipt Date: 20141216
  Transmission Date: 20150529
  Serious: Yes (Other)
  Sender: FDA-Public Use
  Company Number: US-CELGENEUS-163-20785-13125357

PATIENT
  Sex: Male
  Weight: 104.42 kg

DRUGS (1)
  1. THALOMID [Suspect]
     Active Substance: THALIDOMIDE
     Indication: PROSTATE CANCER
     Dosage: 50-100 MG
     Route: 048
     Dates: start: 20131208

REACTIONS (1)
  - Dermatitis exfoliative [Recovered/Resolved]
